FAERS Safety Report 20618550 (Version 1)
Quarter: 2022Q1

REPORT INFORMATION
  Report Type: Spontaneous
  Country: IT (occurrence: IT)
  Receive Date: 20220321
  Receipt Date: 20220321
  Transmission Date: 20220423
  Serious: Yes (Other)
  Sender: FDA-Public Use
  Company Number: IT-drreddys-LIT/ITL/22/0147545

PATIENT
  Age: 56 Year
  Sex: Female

DRUGS (3)
  1. IMATINIB [Suspect]
     Active Substance: IMATINIB
     Indication: Systemic mastocytosis
  2. IMATINIB [Suspect]
     Active Substance: IMATINIB
     Dosage: RE-INITIATED AT A LOWER DOSE
  3. IMATINIB [Suspect]
     Active Substance: IMATINIB
     Dosage: RE-INITIATED AT A LOWER DOSE

REACTIONS (4)
  - Haematotoxicity [Recovered/Resolved]
  - Thrombocytopenia [Recovering/Resolving]
  - Fluid retention [Not Recovered/Not Resolved]
  - Off label use [Recovered/Resolved]
